FAERS Safety Report 10257144 (Version 1)
Quarter: 2014Q2

REPORT INFORMATION
  Report Type: Spontaneous
  Country: GB (occurrence: GB)
  Receive Date: 20140625
  Receipt Date: 20140625
  Transmission Date: 20141212
  Serious: Yes (Hospitalization)
  Sender: FDA-Public Use
  Company Number: GB-DRREDDYS-GER/UKI/14/0041252

PATIENT
  Age: 63 Year
  Sex: Female

DRUGS (2)
  1. ZOLEDRONIC ACID [Suspect]
     Indication: BLOOD CALCIUM INCREASED
     Dates: start: 20130521, end: 20130521
  2. ALENDRONIC ACID [Suspect]
     Indication: OSTEOPOROSIS

REACTIONS (1)
  - Blood calcium increased [Recovered/Resolved]
